FAERS Safety Report 8265845-9 (Version None)
Quarter: 2012Q2

REPORT INFORMATION
  Report Type: 
  Country: None (occurrence: None)
  Receive Date: 20120406
  Receipt Date: 20120403
  Transmission Date: 20120825
  Serious: Yes (Hospitalization)
  Sender: FDA-Public Use
  Company Number: US-GLAXOSMITHKLINE-A0791289A

PATIENT
  Age: 62 Year
  Sex: Female
  Weight: 90.9 kg

DRUGS (7)
  1. GLUCOPHAGE [Concomitant]
  2. VYTORIN [Concomitant]
  3. AVANDIA [Suspect]
     Indication: DIABETES MELLITUS
     Dosage: 4MG TWICE PER DAY
     Route: 048
     Dates: start: 19990101, end: 20070522
  4. ATENOLOL [Concomitant]
  5. LEVOXYL [Concomitant]
  6. ELAVIL [Concomitant]
  7. LOTREL [Concomitant]

REACTIONS (3)
  - MYOCARDIAL INFARCTION [None]
  - ACUTE CORONARY SYNDROME [None]
  - CORONARY ARTERY DISEASE [None]
